FAERS Safety Report 5067210-4 (Version None)
Quarter: 2006Q3

REPORT INFORMATION
  Report Type: 
  Country: None (occurrence: None)
  Receive Date: 20060726
  Receipt Date: 20060719
  Transmission Date: 20061208
  Serious: Yes (Hospitalization)
  Sender: FDA-Public Use
  Company Number: FRWYE246119JUL06

PATIENT
  Age: 37 Year
  Sex: Female

DRUGS (3)
  1. EFFEXOR [Suspect]
     Dosage: ORAL
     Route: 048
     Dates: start: 20060429
  2. HERBAL PREPARATION (HERBAL PREPRATION) [Suspect]
     Dosage: ORAL
     Route: 048
     Dates: start: 20060508, end: 20060518
  3. IKARAN (DIHYDROERGOTAMINE MESILATE) [Concomitant]

REACTIONS (2)
  - ARTHRALGIA [None]
  - SPONTANEOUS HAEMATOMA [None]
